FAERS Safety Report 13371672 (Version 2)
Quarter: 2017Q2

REPORT INFORMATION
  Report Type: Report from Study
  Country: None (occurrence: US)
  Receive Date: 20170325
  Receipt Date: 20170406
  Transmission Date: 20170830
  Serious: Yes (Other)
  Sender: FDA-Public Use
  Company Number: US-ABBVIE-17K-163-1863776-00

PATIENT
  Age: 74 Year
  Sex: Male

DRUGS (1)
  1. HUMIRA [Suspect]
     Active Substance: ADALIMUMAB
     Indication: PSORIASIS
     Route: 058
     Dates: end: 20161223

REACTIONS (7)
  - Post procedural haemorrhage [Unknown]
  - Joint injury [Recovering/Resolving]
  - Viral upper respiratory tract infection [Not Recovered/Not Resolved]
  - Gastroenteritis viral [Recovered/Resolved]
  - Psoriasis [Unknown]
  - White blood cell count increased [Recovered/Resolved]
  - Arthralgia [Not Recovered/Not Resolved]

NARRATIVE: CASE EVENT DATE: 201612
